FAERS Safety Report 3833764 (Version 2)
Quarter: 2020Q3

REPORT INFORMATION
  Report Type: Report from Study
  Country: US (occurrence: US)
  Receive Date: 20020821
  Receipt Date: 20040910
  Transmission Date: 20201105
  Serious: Yes (Hospitalization)
  Sender: FDA-Public Use
  Company Number: NSADSS2002026550

PATIENT
  Age: 72 Year
  Sex: Male
  Weight: 75 kg

DRUGS (16)
  1. GALANTAMINE HYDROBROMIDE. [Suspect]
     Active Substance: GALANTAMINE HYDROBROMIDE
     Route: 049
     Dates: start: 20011108
  2. GALANTAMINE HYDROBROMIDE. [Suspect]
     Active Substance: GALANTAMINE HYDROBROMIDE
     Route: 049
     Dates: start: 20011108
  3. MULTIVITAMINS [Concomitant]
     Active Substance: VITAMINS
     Route: 049
  4. MULTIVITAMINS [Concomitant]
     Active Substance: VITAMINS
     Indication: PROPHYLAXIS
     Route: 049
  5. ACCUPRIL [Concomitant]
     Active Substance: QUINAPRIL HYDROCHLORIDE
     Route: 049
  6. MULTIVITAMINS [Concomitant]
     Active Substance: VITAMINS
     Route: 049
  7. ESTRIOL [Concomitant]
     Active Substance: ESTRIOL
     Route: 049
  8. VITAMIN E [Concomitant]
     Active Substance: .ALPHA.-TOCOPHEROL
     Indication: PROPHYLAXIS
     Route: 049
  9. MULTIVITAMINS [Concomitant]
     Active Substance: VITAMINS
     Route: 049
  10. ACCUPRIL [Concomitant]
     Active Substance: QUINAPRIL HYDROCHLORIDE
     Route: 049
  11. MULTIVITAMINS [Concomitant]
     Active Substance: VITAMINS
     Route: 049
  12. MULTIVITAMINS [Concomitant]
     Active Substance: VITAMINS
     Route: 049
  13. ACCUPRIL [Concomitant]
     Active Substance: QUINAPRIL HYDROCHLORIDE
     Indication: HYPERTENSION
     Route: 049
  14. MULTIVITAMINS [Concomitant]
     Active Substance: VITAMINS
     Route: 049
  15. MULTIVITAMINS [Concomitant]
     Active Substance: VITAMINS
     Route: 049
  16. ACCUPRIL [Concomitant]
     Active Substance: QUINAPRIL HYDROCHLORIDE
     Route: 049

REACTIONS (5)
  - Hyperhidrosis [None]
  - Drug ineffective [None]
  - Gastrooesophageal reflux disease [Not Recovered/Not Resolved]
  - Chest pain [None]
  - Hypoaesthesia [None]

NARRATIVE: CASE EVENT DATE: 20020620
